FAERS Safety Report 7951670-2 (Version None)
Quarter: 2011Q4

REPORT INFORMATION
  Report Type: 
  Country: None (occurrence: None)
  Receive Date: 20111201
  Receipt Date: 20111124
  Transmission Date: 20120403
  Serious: Yes (Hospitalization)
  Sender: FDA-Public Use
  Company Number: JP-NOVOPROD-340231

PATIENT

DRUGS (5)
  1. ASPIRIN [Concomitant]
     Dosage: 100 MG, QD
     Route: 048
     Dates: end: 20111122
  2. MICARDIS [Concomitant]
     Dosage: 40 MG, QD
     Route: 048
     Dates: end: 20111122
  3. LIPITOR [Concomitant]
     Dosage: 10 MG, QD
     Route: 048
     Dates: end: 20111122
  4. WARFARIN SODIUM [Concomitant]
     Dosage: 3.5 MG, QD
     Route: 048
     Dates: end: 20111122
  5. VICTOZA [Suspect]
     Indication: TYPE 2 DIABETES MELLITUS
     Dosage: 0.3 MG, QD
     Route: 058
     Dates: start: 20111111, end: 20111122

REACTIONS (1)
  - DIABETIC KETOACIDOSIS [None]
